FAERS Safety Report 6265823-5 (Version None)
Quarter: 2009Q3

REPORT INFORMATION
  Report Type: 
  Country: None (occurrence: None)
  Receive Date: 20090713
  Receipt Date: 20090702
  Transmission Date: 20100115
  Serious: Yes (Life-Threatening, Hospitalization, Other)
  Sender: FDA-Public Use
  Company Number: B0566959A

PATIENT
  Sex: Male
  Weight: 50 kg

DRUGS (2)
  1. ALKERAN [Suspect]
     Indication: MULTIPLE MYELOMA
     Dosage: 14MG PER DAY
     Route: 048
     Dates: start: 20090129, end: 20090217
  2. PREDNISOLONE [Concomitant]
     Indication: MULTIPLE MYELOMA
     Dosage: 100MG PER DAY
     Route: 048
     Dates: start: 20090130, end: 20090217

REACTIONS (4)
  - APLASIA [None]
  - OVERDOSE [None]
  - PANCYTOPENIA [None]
  - THROMBOCYTOPENIA [None]
